FAERS Safety Report 15300929 (Version 1)
Quarter: 2018Q3

REPORT INFORMATION
  Report Type: Spontaneous
  Country: JP (occurrence: JP)
  Receive Date: 20180821
  Receipt Date: 20180821
  Transmission Date: 20181010
  Serious: Yes (Hospitalization, Other)
  Sender: FDA-Public Use
  Company Number: JP-009507513-1710JPN000771J

PATIENT
  Age: 66 Year
  Sex: Male
  Weight: 60 kg

DRUGS (8)
  1. CARBOCISTEINE [Concomitant]
     Active Substance: CARBOCYSTEINE
     Indication: PROPHYLAXIS
     Dosage: 500 MG, TID
     Route: 048
  2. ISOBIDE [Concomitant]
     Active Substance: ISOSORBIDE
     Indication: PROPHYLAXIS
     Dosage: 3 ML, TID
     Route: 048
     Dates: end: 20170624
  3. ADONA (CARBAZOCHROME SODIUM SULFONATE) [Concomitant]
     Active Substance: CARBAZOCHROME SODIUM SULFONATE
     Indication: PROPHYLAXIS
     Dosage: 30 MG, TID
     Route: 048
  4. LANSOPRAZOLE OD [Concomitant]
     Active Substance: LANSOPRAZOLE
     Indication: PROPHYLAXIS
     Dosage: 15 MG, QD
     Route: 048
     Dates: end: 20170624
  5. KEYTRUDA [Suspect]
     Active Substance: PEMBROLIZUMAB
     Indication: LUNG ADENOCARCINOMA
     Dosage: 200 MG, Q3W(TOTAL DOSES ADMINISTERED: 13 DOSES)
     Route: 041
     Dates: start: 20170502, end: 20180330
  6. KINDAVATE [Concomitant]
     Active Substance: CLOBETASONE BUTYRATE
     Indication: PROPHYLAXIS
     Dosage: UNK
     Route: 061
     Dates: end: 20171006
  7. CANDESARTAN. [Concomitant]
     Active Substance: CANDESARTAN
     Indication: PROPHYLAXIS
     Dosage: 8 MG, QD
     Route: 048
     Dates: end: 20170804
  8. E KEPPRA [Concomitant]
     Active Substance: LEVETIRACETAM
     Indication: PROPHYLAXIS
     Dosage: 500 MG, BID
     Route: 048

REACTIONS (2)
  - Enterovesical fistula [Recovered/Resolved]
  - Pruritus [Recovering/Resolving]

NARRATIVE: CASE EVENT DATE: 20170502
